FAERS Safety Report 9165916 (Version 4)
Quarter: 2013Q2

REPORT INFORMATION
  Report Type: Spontaneous
  Country: US (occurrence: US)
  Receive Date: 20130315
  Receipt Date: 20130403
  Transmission Date: 20140414
  Serious: Yes (Hospitalization)
  Sender: FDA-Public Use
  Company Number: US-JNJFOC-20130303931

PATIENT
  Sex: Male

DRUGS (1)
  1. XARELTO [Suspect]
     Indication: THROMBOSIS PROPHYLAXIS
     Dosage: WAS ON MEDICATION FOR A COUPLE OF WEEKS
     Route: 048

REACTIONS (1)
  - Haemorrhage intracranial [Unknown]
